FAERS Safety Report 18438244 (Version 1)
Quarter: 2020Q4

REPORT INFORMATION
  Report Type: Other
  Country: US (occurrence: US)
  Receive Date: 20201028
  Receipt Date: 20201028
  Transmission Date: 20210114
  Serious: No
  Sender: FDA-Public Use
  Company Number: US-ROCHE-2428461

PATIENT
  Age: 71 Year
  Sex: Female

DRUGS (2)
  1. AMIODARONE [Suspect]
     Active Substance: AMIODARONE
     Indication: PRODUCT USED FOR UNKNOWN INDICATION
     Route: 065
  2. COBIMETINIB. [Suspect]
     Active Substance: COBIMETINIB
     Indication: ERDHEIM-CHESTER DISEASE
     Route: 065

REACTIONS (5)
  - Blood creatine phosphokinase increased [Unknown]
  - Off label use [Unknown]
  - Dropped head syndrome [Unknown]
  - Drug interaction [Unknown]
  - Intentional product use issue [Unknown]
